FAERS Safety Report 13873551 (Version 1)
Quarter: 2017Q3

REPORT INFORMATION
  Report Type: Spontaneous
  Country: US (occurrence: US)
  Receive Date: 20170816
  Receipt Date: 20170816
  Transmission Date: 20171127
  Serious: Yes (Hospitalization)
  Sender: FDA-Public Use
  Company Number: US-MYLANLABS-2017M1049929

PATIENT

DRUGS (5)
  1. BUTISOL SODIUM [Suspect]
     Active Substance: BUTABARBITAL SODIUM
     Indication: TREMOR
     Dosage: 30 MG, QD (10 TABLETS A DAY)
     Route: 048
     Dates: start: 198011, end: 1985
  2. LIPITOR [Concomitant]
     Active Substance: ATORVASTATIN CALCIUM
     Indication: LIPIDS INCREASED
  3. LISINOPRIL. [Concomitant]
     Active Substance: LISINOPRIL
     Indication: HYPERTENSION
     Dosage: 10 MG, QD
  4. ZOLOFT [Concomitant]
     Active Substance: SERTRALINE HYDROCHLORIDE
     Indication: DEPRESSION
     Dosage: 150 MG, QD
     Dates: start: 1990
  5. LIPITOR [Concomitant]
     Active Substance: ATORVASTATIN CALCIUM
     Indication: BLOOD CHOLESTEROL INCREASED
     Dosage: 40 MG, QD

REACTIONS (9)
  - Hypertension [Unknown]
  - Gastrointestinal disorder [Unknown]
  - Tachycardia [Unknown]
  - Condition aggravated [Recovered/Resolved]
  - Blood glucose increased [Recovering/Resolving]
  - Off label use [Unknown]
  - Unevaluable event [Unknown]
  - Overdose [Unknown]
  - Platelet count decreased [Unknown]

NARRATIVE: CASE EVENT DATE: 198011
